FAERS Safety Report 6745655-1 (Version None)
Quarter: 2010Q2

REPORT INFORMATION
  Report Type: 
  Country: None (occurrence: None)
  Receive Date: 20100526
  Receipt Date: 20100517
  Transmission Date: 20101027
  Serious: Yes (Other)
  Sender: FDA-Public Use
  Company Number: 012057

PATIENT
  Age: 60 Year
  Sex: Female

DRUGS (2)
  1. KEPPRA [Suspect]
     Dosage: 500 MG ORAL
     Route: 048
  2. TAVOR /00273201/ (TAVOR 1) [Suspect]
     Dosage: ORAL
     Route: 048

REACTIONS (2)
  - CONVULSION [None]
  - LOSS OF CONSCIOUSNESS [None]
